FAERS Safety Report 4399010-2 (Version None)
Quarter: 2004Q3

REPORT INFORMATION
  Report Type: 
  Country: None (occurrence: None)
  Receive Date: 20040712
  Receipt Date: 20040622
  Transmission Date: 20050211
  Serious: Yes (Death, Other)
  Sender: FDA-Public Use
  Company Number: USA040670723

PATIENT
  Sex: Female

DRUGS (2)
  1. INSULIN [Suspect]
     Dates: start: 19880101
  2. INSULIN [Suspect]

REACTIONS (4)
  - ANGIOPATHY [None]
  - DRUG HYPERSENSITIVITY [None]
  - RENAL FAILURE [None]
  - SKIN ULCER [None]
